FAERS Safety Report 9130737 (Version 1)
Quarter: 2013Q1

REPORT INFORMATION
  Report Type: Spontaneous
  Country: JP (occurrence: JP)
  Receive Date: 20130301
  Receipt Date: 20130301
  Transmission Date: 20140127
  Serious: Yes (Other)
  Sender: FDA-Public Use
  Company Number: PHHY2012JP104855

PATIENT
  Age: 76 Year
  Sex: Male

DRUGS (4)
  1. GLIVEC [Suspect]
     Indication: GASTROINTESTINAL STROMAL TUMOUR
     Dosage: 400 MG, DAILY
     Route: 048
  2. GLIVEC [Suspect]
     Dosage: 200 MG, UNK
  3. GLIVEC [Suspect]
     Dosage: 100 MG, DAILY
     Route: 048
  4. GLIVEC [Suspect]
     Dosage: 100 MG, DAILY
     Route: 048

REACTIONS (15)
  - Liver disorder [Recovered/Resolved]
  - Rash [Recovered/Resolved]
  - Aspartate aminotransferase increased [Recovered/Resolved]
  - Alanine aminotransferase increased [Recovered/Resolved]
  - Palmar-plantar erythrodysaesthesia syndrome [Recovered/Resolved]
  - Face oedema [Recovered/Resolved]
  - Decreased appetite [Recovered/Resolved]
  - Nausea [Recovered/Resolved]
  - Diarrhoea [Recovered/Resolved]
  - Oedema peripheral [Recovered/Resolved]
  - Generalised oedema [Recovered/Resolved]
  - Eyelid oedema [Recovered/Resolved]
  - Pruritus [Recovered/Resolved]
  - Rash maculo-papular [Recovered/Resolved]
  - Erythema [Recovered/Resolved]
